FAERS Safety Report 5903188-6 (Version None)
Quarter: 2008Q3

REPORT INFORMATION
  Report Type: 
  Country: None (occurrence: None)
  Receive Date: 20080930
  Receipt Date: 20080923
  Transmission Date: 20090109
  Serious: Yes (Death, Hospitalization)
  Sender: FDA-Public Use
  Company Number: US-JNJFOC-20080905696

PATIENT

DRUGS (8)
  1. CISAPRIDE [Suspect]
     Indication: DRUG USE FOR UNKNOWN INDICATION
  2. METOCLOPRAMIDE [Suspect]
     Indication: DRUG USE FOR UNKNOWN INDICATION
  3. PROTON PUMP INHIBITOR [Suspect]
     Indication: DRUG USE FOR UNKNOWN INDICATION
  4. ANTIARRHYTHMIC [Concomitant]
  5. BETA BLOCKER [Concomitant]
  6. DIURETIC [Concomitant]
  7. MAGNESIUM SUPPLEMENT [Concomitant]
  8. POTASSIUM SUPPLEMENT [Concomitant]

REACTIONS (3)
  - CARDIAC ARREST [None]
  - VENTRICULAR FIBRILLATION [None]
  - VENTRICULAR TACHYCARDIA [None]
